FAERS Safety Report 12460110 (Version 3)
Quarter: 2016Q3

REPORT INFORMATION
  Report Type: Spontaneous
  Country: US (occurrence: US)
  Receive Date: 20160613
  Receipt Date: 20160815
  Transmission Date: 20161109
  Serious: No
  Sender: FDA-Public Use
  Company Number: US-PFIZER INC-2016295427

PATIENT
  Age: 49 Year
  Sex: Female

DRUGS (2)
  1. XELJANZ [Suspect]
     Active Substance: TOFACITINIB CITRATE
     Indication: RHEUMATOID ARTHRITIS
     Dosage: 5 MG, 2X/DAY
     Route: 048
  2. XELJANZ [Suspect]
     Active Substance: TOFACITINIB CITRATE
     Dosage: 5 MG, 1X/DAY
     Route: 048
     Dates: start: 20160804

REACTIONS (5)
  - Swelling [Unknown]
  - Intentional product use issue [Unknown]
  - Fluid retention [Unknown]
  - Drug effect incomplete [Unknown]
  - Alopecia [Unknown]

NARRATIVE: CASE EVENT DATE: 20160609
